FAERS Safety Report 23144135 (Version 1)
Quarter: 2023Q4

REPORT INFORMATION
  Report Type: Spontaneous
  Country: US (occurrence: US)
  Receive Date: 20231103
  Receipt Date: 20231103
  Transmission Date: 20240110
  Serious: No
  Sender: FDA-Public Use
  Company Number: US-ROMARKLABS-2023-US-000023

PATIENT
  Age: 28 Year
  Sex: Female

DRUGS (2)
  1. ALINIA [Suspect]
     Active Substance: NITAZOXANIDE
     Indication: Irritable bowel syndrome
     Dosage: 1 TABLET TWICE DAILY
     Route: 048
     Dates: end: 20231031
  2. DIPHENHYDRAMINE HYDROCHLORIDE [Concomitant]
     Active Substance: DIPHENHYDRAMINE HYDROCHLORIDE
     Indication: Rash papular
     Dosage: 2 TABLETS ONCE
     Route: 048
     Dates: start: 20231101

REACTIONS (3)
  - Rash papular [Recovered/Resolved]
  - Throat irritation [Recovered/Resolved]
  - Pharyngeal swelling [Recovered/Resolved]

NARRATIVE: CASE EVENT DATE: 20231031
